FAERS Safety Report 12911534 (Version 1)
Quarter: 2016Q4

REPORT INFORMATION
  Report Type: Spontaneous
  Country: IT (occurrence: IT)
  Receive Date: 20161104
  Receipt Date: 20161104
  Transmission Date: 20170207
  Serious: Yes (Hospitalization)
  Sender: FDA-Public Use
  Company Number: IT-G+W LABS-GW2016IT000162

PATIENT

DRUGS (2)
  1. FUSIDIC ACID [Suspect]
     Active Substance: FUSIDIC ACID
     Indication: DERMATITIS
     Dosage: 2-3 TIMES DAILY IN 7-14-DAY CYCLES
     Route: 061
  2. BETA-VAL [Suspect]
     Active Substance: BETAMETHASONE VALERATE
     Indication: DERMATITIS
     Dosage: 2-3 TIMES DAILY IN 7-14-DAY CYCLES
     Route: 061

REACTIONS (2)
  - Cushing^s syndrome [Recovered/Resolved]
  - Hypothalamic pituitary adrenal axis suppression [Recovered/Resolved]
